FAERS Safety Report 6024632-2 (Version None)
Quarter: 2008Q4

REPORT INFORMATION
  Report Type: 
  Country: None (occurrence: None)
  Receive Date: 20081229
  Receipt Date: 20081229
  Transmission Date: 20090506
  Serious: Yes (Hospitalization)
  Sender: FDA-Public Use
  Company Number: None

PATIENT

DRUGS (1)
  1. SCOPE WHITE MOUTHWASH, MINT SPLASH FLAVOR, LIQUID CONTAINING ETHANOL 5 [Suspect]
     Route: 048

REACTIONS (4)
  - ABDOMINAL DISCOMFORT [None]
  - ACCIDENTAL EXPOSURE [None]
  - CONDITION AGGRAVATED [None]
  - GASTROINTESTINAL ULCER [None]
